FAERS Safety Report 5535472-2 (Version None)
Quarter: 2007Q4

REPORT INFORMATION
  Report Type: 
  Country: None (occurrence: None)
  Receive Date: 20071204
  Receipt Date: 20071204
  Transmission Date: 20080405
  Serious: No
  Sender: FDA-Public Use
  Company Number: None

PATIENT
  Age: 66 Year
  Sex: Male
  Weight: 86 kg

DRUGS (1)
  1. VARENICLINE   1MG   PFIZER [Suspect]
     Indication: SMOKING CESSATION THERAPY
     Dosage: 1MG  AND 0.5MG  DOSES  BID  PO
     Route: 048
     Dates: start: 20071102, end: 20071121

REACTIONS (3)
  - CONSTIPATION [None]
  - DRUG INTOLERANCE [None]
  - NAUSEA [None]
